FAERS Safety Report 8553661-X (Version None)
Quarter: 2012Q3

REPORT INFORMATION
  Report Type: 
  Country: None (occurrence: None)
  Receive Date: 20120725
  Receipt Date: 20120725
  Transmission Date: 20120928
  Serious: Yes (Life-Threatening, Disabling)
  Sender: FDA-Public Use
  Company Number: None

PATIENT
  Sex: Male
  Weight: 195 kg

DRUGS (1)
  1. LEVAQUIN [Suspect]
     Indication: URINARY TRACT INFECTION
     Dosage: 500 MG, ONCE A DAY, PO
     Route: 048
     Dates: start: 20050515, end: 20050525

REACTIONS (7)
  - NERVE INJURY [None]
  - INSOMNIA [None]
  - SUICIDAL IDEATION [None]
  - VISUAL IMPAIRMENT [None]
  - NEUROPATHY PERIPHERAL [None]
  - TENDON DISORDER [None]
  - HEADACHE [None]
